FAERS Safety Report 7732763-1 (Version None)
Quarter: 2011Q3

REPORT INFORMATION
  Report Type: 
  Country: None (occurrence: None)
  Receive Date: 20110829
  Receipt Date: 20110824
  Transmission Date: 20111222
  Serious: Yes (Other)
  Sender: FDA-Public Use
  Company Number: AECAN201100133

PATIENT
  Age: 73 Year
  Sex: Male

DRUGS (4)
  1. GAMUNEX [Suspect]
     Indication: PRODUCT USED FOR UNKNOWN INDICATION
     Dosage: 0.6 MG;TOTAL;IV
     Route: 042
     Dates: start: 20110411, end: 20110412
  2. GAMUNEX [Suspect]
  3. GAMUNEX [Suspect]
  4. GAMUNEX [Suspect]

REACTIONS (4)
  - PRODUCT CONTAMINATION MICROBIAL [None]
  - DYSPNOEA [None]
  - HYPOTENSION [None]
  - STAPHYLOCOCCAL INFECTION [None]
